FAERS Safety Report 23093363 (Version 1)
Quarter: 2023Q4

REPORT INFORMATION
  Report Type: Spontaneous
  Country: PL (occurrence: PL)
  Receive Date: 20231022
  Receipt Date: 20231022
  Transmission Date: 20240110
  Serious: Yes (Death, Hospitalization, Other)
  Sender: FDA-Public Use
  Company Number: PL-TEVA-2023-PL-2899438

PATIENT
  Age: 64 Year
  Sex: Female

DRUGS (6)
  1. METOPROLOL [Concomitant]
     Active Substance: METOPROLOL
     Indication: Atrial fibrillation
     Dosage: ZOK 1 ? 50 MG
     Route: 065
  2. RYTHMOL [Concomitant]
     Active Substance: PROPAFENONE HYDROCHLORIDE
     Indication: Atrial fibrillation
     Dosage: 2 ? 150 MG
     Route: 065
  3. DIPHENHYDRAMINE [Interacting]
     Active Substance: DIPHENHYDRAMINE
     Indication: Arthralgia
     Route: 065
  4. OMEPRAZOLE [Interacting]
     Active Substance: OMEPRAZOLE
     Indication: Abdominal pain upper
     Dosage: 40 MILLIGRAM DAILY; 40 MG/24 H
     Route: 065
  5. ACETAMINOPHEN [Interacting]
     Active Substance: ACETAMINOPHEN
     Indication: Arthralgia
     Dosage: 1000 MG 2 ?/24 H DURING THE DAY AND A COMBINATION OF PARACETAMOL AND DIPHENHYDRAMINE AT NIGHT
     Route: 065
  6. WARFARIN [Interacting]
     Active Substance: WARFARIN
     Indication: Anticoagulant therapy
     Dosage: VARIABLE DOSES
     Route: 065

REACTIONS (6)
  - Loss of consciousness [Fatal]
  - Subarachnoid haemorrhage [Fatal]
  - Drug interaction [Fatal]
  - Abdominal pain upper [Unknown]
  - Drug ineffective [Unknown]
  - Product prescribing error [Unknown]
